FAERS Safety Report 7660080-7 (Version None)
Quarter: 2011Q3

REPORT INFORMATION
  Report Type: 
  Country: None (occurrence: None)
  Receive Date: 20110805
  Receipt Date: 20110722
  Transmission Date: 20111222
  Serious: Yes (Other)
  Sender: FDA-Public Use
  Company Number: PHHY2011US61098

PATIENT
  Sex: Female

DRUGS (1)
  1. LOTREL [Suspect]
     Dosage: UNK UKN, UNK

REACTIONS (3)
  - CORNEAL DYSTROPHY [None]
  - PITUITARY-DEPENDENT CUSHING'S SYNDROME [None]
  - CEREBROVASCULAR ACCIDENT [None]
